FAERS Safety Report 7277783-9 (Version None)
Quarter: 2011Q1

REPORT INFORMATION
  Report Type: 
  Country: None (occurrence: None)
  Receive Date: 20110207
  Receipt Date: 20101013
  Transmission Date: 20110831
  Serious: No
  Sender: FDA-Public Use
  Company Number: A0886740A

PATIENT
  Sex: Female

DRUGS (2)
  1. OLUX E [Suspect]
     Route: 061
     Dates: start: 20100901, end: 20101001
  2. NO CONCURRENT MEDICATION [Concomitant]

REACTIONS (3)
  - SWELLING [None]
  - DYSPNOEA [None]
  - URTICARIA CONTACT [None]
